FAERS Safety Report 10418741 (Version 1)
Quarter: 2014Q3

REPORT INFORMATION
  Report Type: Spontaneous
  Country: GB (occurrence: GB)
  Receive Date: 20140829
  Receipt Date: 20140829
  Transmission Date: 20150326
  Serious: Yes (Other)
  Sender: FDA-Public Use
  Company Number: GB-TEVA-504073ISR

PATIENT
  Age: 82 Year
  Sex: Female
  Weight: 57.15 kg

DRUGS (13)
  1. AMOXICILLIN W/CLAVULANIC ACID [Suspect]
     Active Substance: AMOXICILLIN\CLAVULANIC ACID
     Dates: start: 20140624
  2. DIORALYTE [Concomitant]
     Active Substance: CITRIC ACID MONOHYDRATE\DEXTROSE\POTASSIUM CATION\SODIUM CHLORIDE
     Dates: start: 20140711, end: 20140712
  3. ASPIRIN. [Concomitant]
     Active Substance: ASPIRIN
     Dates: start: 20140418, end: 20140808
  4. CO-DYDRAMOL [Concomitant]
     Active Substance: ACETAMINOPHEN\DIHYDROCODEINE
     Dates: start: 20140613, end: 20140709
  5. OMEPRAZOLE. [Concomitant]
     Active Substance: OMEPRAZOLE
     Dates: start: 20140613, end: 20140711
  6. RAMIPRIL. [Concomitant]
     Active Substance: RAMIPRIL
     Dates: start: 20140418, end: 20140530
  7. CYCLIZINE [Concomitant]
     Active Substance: CYCLIZINE
     Dates: start: 20140709, end: 20140719
  8. DOXYCYCLINE. [Concomitant]
     Active Substance: DOXYCYCLINE
     Dates: start: 20140709, end: 20140716
  9. NAPROXEN. [Concomitant]
     Active Substance: NAPROXEN
     Dates: start: 20140613, end: 20140614
  10. ATENOLOL. [Concomitant]
     Active Substance: ATENOLOL
     Dates: start: 20140418, end: 20140808
  11. ATORVASTATIN [Concomitant]
     Active Substance: ATORVASTATIN
     Dates: start: 20140418, end: 20140808
  12. BENDROFLUMETHIAZIDE [Concomitant]
     Active Substance: BENDROFLUMETHIAZIDE
     Dates: start: 20140418, end: 20140808
  13. BUPRENORPHINE [Concomitant]
     Active Substance: BUPRENORPHINE
     Dates: start: 20140620, end: 20140628

REACTIONS (1)
  - Hallucination [Recovered/Resolved]

NARRATIVE: CASE EVENT DATE: 20140808
